FAERS Safety Report 5190622-5 (Version None)
Quarter: 2006Q4

REPORT INFORMATION
  Report Type: 
  Country: None (occurrence: None)
  Receive Date: 20061222
  Receipt Date: 20061004
  Transmission Date: 20070319
  Serious: No
  Sender: FDA-Public Use
  Company Number: US-BRISTOL-MYERS SQUIBB COMPANY-13530613

PATIENT
  Age: 77 Year
  Sex: Female
  Weight: 59 kg

DRUGS (4)
  1. ORENCIA [Suspect]
     Indication: RHEUMATOID ARTHRITIS
     Route: 042
     Dates: start: 20060501, end: 20060901
  2. PREDNISONE TAB [Concomitant]
  3. ALBUTEROL [Concomitant]
  4. KETOCONAZOLE [Concomitant]

REACTIONS (2)
  - DYSPNOEA [None]
  - HAEMOGLOBIN DECREASED [None]
